FAERS Safety Report 8471856-0 (Version None)
Quarter: 2012Q2

REPORT INFORMATION
  Report Type: 
  Country: None (occurrence: None)
  Receive Date: 20120627
  Receipt Date: 20120618
  Transmission Date: 20120825
  Serious: Yes (Hospitalization)
  Sender: FDA-Public Use
  Company Number: US-BAYER-2012-062038

PATIENT
  Age: 24 Year
  Sex: Female
  Weight: 69.116 kg

DRUGS (4)
  1. YASMIN [Suspect]
     Indication: CONTRACEPTION
  2. IBUPROFEN (ADVIL) [Concomitant]
     Dosage: 200 MG, UNK
  3. YASMIN [Suspect]
     Indication: MENSTRUATION IRREGULAR
  4. NAPROXEN (ALEVE) [Concomitant]
     Dosage: UNK

REACTIONS (1)
  - PULMONARY EMBOLISM [None]
